FAERS Safety Report 10067167 (Version 1)
Quarter: 2014Q2

REPORT INFORMATION
  Report Type: Spontaneous
  Country: US (occurrence: None)
  Receive Date: 20140408
  Receipt Date: 20140408
  Transmission Date: 20141212
  Serious: Yes (Hospitalization)
  Sender: FDA-Public Use
  Company Number: None

PATIENT
  Age: 19 Year
  Sex: Male
  Weight: 65.77 kg

DRUGS (2)
  1. GENERIC BACTRIM [Suspect]
     Indication: URINARY TRACT INFECTION
     Dosage: 1 PILL
     Route: 048
     Dates: start: 20140314, end: 20140330
  2. GENERIC BACTRIM [Suspect]
     Indication: PROSTATE INFECTION
     Dosage: 1 PILL
     Route: 048
     Dates: start: 20140314, end: 20140330

REACTIONS (1)
  - Stevens-Johnson syndrome [None]
